FAERS Safety Report 24210552 (Version 1)
Quarter: 2024Q3

REPORT INFORMATION
  Report Type: Spontaneous
  Country: IS (occurrence: IS)
  Receive Date: 20240814
  Receipt Date: 20240814
  Transmission Date: 20241017
  Serious: Yes (Life-Threatening, Hospitalization)
  Sender: pharmaAND
  Company Number: None

PATIENT
  Age: 32 Year
  Sex: Female
  Weight: 67 kg

DRUGS (5)
  1. PEGASYS [Suspect]
     Active Substance: PEGINTERFERON ALFA-2A
     Indication: Essential thrombocythaemia
     Dosage: 90 MICROGRAMS PER WEEK
     Dates: start: 20240610, end: 20240617
  2. PEGASYS [Suspect]
     Active Substance: PEGINTERFERON ALFA-2A
     Dosage: 67 MICROGRAMS PER WEEK
     Dates: start: 20240513, end: 20240603
  3. HJARTAMAGNYL [Concomitant]
     Indication: Product used for unknown indication
     Dosage: 1 TABLET PER DAY
     Dates: start: 20230915
  4. HYDROXYUREA [Concomitant]
     Active Substance: HYDROXYUREA
     Indication: Product used for unknown indication
     Dosage: DOSAGE UNKNOWN
     Dates: start: 20240301, end: 20240610
  5. SERTRAL [Concomitant]
     Indication: Product used for unknown indication
     Dosage: 1 TABLET PER DAY
     Dates: start: 20200115, end: 20240625

REACTIONS (12)
  - Violence-related symptom [Recovering/Resolving]
  - Dissociation [Recovering/Resolving]
  - Suicide attempt [Recovering/Resolving]
  - Mood swings [Recovering/Resolving]
  - Restlessness [Recovering/Resolving]
  - Self-injurious ideation [Recovering/Resolving]
  - Anger [Recovering/Resolving]
  - Irritability [Recovering/Resolving]
  - Memory impairment [Recovering/Resolving]
  - Intrusive thoughts [Recovering/Resolving]
  - Off label use [Recovered/Resolved]
  - Essential thrombocythaemia [Recovered/Resolved]

NARRATIVE: CASE EVENT DATE: 20240513
